FAERS Safety Report 8816911 (Version 1)
Quarter: 2012Q4

REPORT INFORMATION
  Report Type: Spontaneous
  Country: US (occurrence: None)
  Receive Date: 20121002
  Receipt Date: 20121002
  Transmission Date: 20130627
  Serious: No
  Sender: FDA-Public Use
  Company Number: None

PATIENT
  Age: 51 Year
  Sex: Female
  Weight: 64.41 kg

DRUGS (1)
  1. PREMPRO [Suspect]
     Indication: HOT FLASHES
     Dosage: 1 daily
     Dates: start: 20120601, end: 20120927

REACTIONS (3)
  - Mouth ulceration [None]
  - Alopecia [None]
  - Headache [None]
